FAERS Safety Report 11382346 (Version 1)
Quarter: 2015Q3

REPORT INFORMATION
  Report Type: Spontaneous
  Country: US (occurrence: US)
  Receive Date: 20150811
  Receipt Date: 20150811
  Transmission Date: 20151125
  Serious: No
  Sender: FDA-Public Use
  Company Number: US-ELI_LILLY_AND_COMPANY-US201006005014

PATIENT
  Age: 69 Year
  Sex: Male

DRUGS (1)
  1. CIALIS [Suspect]
     Active Substance: TADALAFIL

REACTIONS (5)
  - Dyskinesia [Unknown]
  - Flushing [Unknown]
  - Facial spasm [Unknown]
  - Tic [Unknown]
  - Tongue disorder [Unknown]

NARRATIVE: CASE EVENT DATE: 20100610
